FAERS Safety Report 16572526 (Version 1)
Quarter: 2019Q3

REPORT INFORMATION
  Report Type: Spontaneous
  Country: US (occurrence: US)
  Receive Date: 20190715
  Receipt Date: 20190715
  Transmission Date: 20191004
  Serious: Yes (Other)
  Sender: FDA-Public Use
  Company Number: US-MYLANLABS-2019M1064231

PATIENT
  Age: 47 Year
  Sex: Female
  Weight: 86 kg

DRUGS (1)
  1. TRIAMTERENE AND HYDROCHLOROTHIAZIDE TABLETS [Suspect]
     Active Substance: HYDROCHLOROTHIAZIDE\TRIAMTERENE
     Indication: WEIGHT INCREASED
     Dosage: UNK
     Dates: start: 20190609

REACTIONS (3)
  - Condition aggravated [Unknown]
  - Coeliac disease [Unknown]
  - Off label use [Unknown]

NARRATIVE: CASE EVENT DATE: 2019
